FAERS Safety Report 8141834-X (Version None)
Quarter: 2012Q1

REPORT INFORMATION
  Report Type: 
  Country: None (occurrence: None)
  Receive Date: 20120216
  Receipt Date: 20120208
  Transmission Date: 20120608
  Serious: Yes (Hospitalization, Disabling, Other)
  Sender: FDA-Public Use
  Company Number: US-ELI_LILLY_AND_COMPANY-US201112006736

PATIENT
  Sex: Male

DRUGS (4)
  1. VIAGRA [Concomitant]
  2. CIALIS [Suspect]
     Indication: ERECTILE DYSFUNCTION
     Dosage: 5 MG, QD
  3. CIALIS [Suspect]
     Dosage: 5 MG, QD
     Dates: start: 20111101
  4. CIALIS [Suspect]
     Dosage: 2.5 MG, QD

REACTIONS (2)
  - EPILEPSY [None]
  - DRUG INEFFECTIVE [None]
